FAERS Safety Report 10039678 (Version 1)
Quarter: 2014Q1

REPORT INFORMATION
  Report Type: Spontaneous
  Country: US (occurrence: US)
  Receive Date: 20140326
  Receipt Date: 20140326
  Transmission Date: 20141002
  Serious: Yes (Hospitalization)
  Sender: FDA-Public Use
  Company Number: US-MYLANLABS-2014S1006156

PATIENT
  Age: 55 Year
  Sex: Male

DRUGS (14)
  1. GABAPENTIN [Suspect]
     Indication: NEURALGIA
     Dosage: 600 MG TOTAL DAILY DOSE
     Route: 065
  2. CLOPIDOGREL [Concomitant]
     Route: 065
  3. AMLODIPINE [Concomitant]
     Route: 065
  4. HYDRALAZINE [Concomitant]
     Route: 065
  5. METOPROLOL [Concomitant]
     Route: 065
  6. CLONIDINE [Concomitant]
     Route: 065
  7. ATORVASTATIN [Concomitant]
     Route: 065
  8. OXYCODONE [Concomitant]
     Route: 065
  9. HYDROMORPHONE [Concomitant]
     Route: 065
  10. SEVELAMER [Concomitant]
     Route: 065
  11. LANTHANUM CARBONATE [Concomitant]
     Route: 065
  12. INSULIN GLARGINE [Concomitant]
     Route: 065
  13. VANCOMYCIN [Concomitant]
     Route: 065
  14. PIPERACILLIN W/TAZOBACTAM          /01606301/ [Concomitant]
     Route: 065

REACTIONS (4)
  - Myoclonus [Recovered/Resolved]
  - Toxicity to various agents [Recovered/Resolved]
  - Confusional state [Recovered/Resolved]
  - Lethargy [Unknown]
